FAERS Safety Report 16012065 (Version 3)
Quarter: 2019Q2

REPORT INFORMATION
  Report Type: Report from Study
  Country: US (occurrence: US)
  Receive Date: 20190227
  Receipt Date: 20190402
  Transmission Date: 20190711
  Serious: Yes (Other)
  Sender: FDA-Public Use
  Company Number: PHEH2019US007883

PATIENT
  Sex: Male
  Weight: 108.39 kg

DRUGS (1)
  1. ENTRESTO [Suspect]
     Active Substance: SACUBITRIL\VALSARTAN
     Indication: CARDIAC FAILURE
     Dosage: UNK
     Route: 048

REACTIONS (6)
  - Hypersensitivity [Unknown]
  - Dizziness [Unknown]
  - Dyspnoea [Unknown]
  - Angina pectoris [Unknown]
  - Chest pain [Unknown]
  - Mouth breathing [Unknown]
